FAERS Safety Report 12711171 (Version 1)
Quarter: 2016Q3

REPORT INFORMATION
  Report Type: Spontaneous
  Country: US (occurrence: US)
  Receive Date: 20160902
  Receipt Date: 20160902
  Transmission Date: 20161109
  Serious: No
  Sender: FDA-Public Use
  Company Number: None

PATIENT

DRUGS (1)
  1. NINLARO [Suspect]
     Active Substance: IXAZOMIB
     Indication: PLASMA CELL MYELOMA
     Dosage: NINLARO 4 MG - 1 CAP WEEKLY - ORAL
     Route: 048
     Dates: start: 201606

REACTIONS (1)
  - Groin pain [None]

NARRATIVE: CASE EVENT DATE: 20160901
